FAERS Safety Report 25758881 (Version 1)
Quarter: 2025Q3

REPORT INFORMATION
  Report Type: Other
  Country: CA (occurrence: CA)
  Receive Date: 20250904
  Receipt Date: 20250904
  Transmission Date: 20251021
  Serious: Yes (Hospitalization, Other)
  Sender: BIOCON
  Company Number: CA-BIOCON BIOLOGICS LIMITED-BBL2025004780

PATIENT

DRUGS (7)
  1. TRASTUZUMAB [Suspect]
     Active Substance: TRASTUZUMAB
     Indication: Colorectal cancer metastatic
     Dosage: 512 MILLIGRAM, Q3W
     Route: 042
  2. FLUOROURACIL [Suspect]
     Active Substance: FLUOROURACIL
     Indication: Colorectal cancer metastatic
     Dosage: 832 MILLIGRAM, Q2W
     Route: 040
  3. FLUOROURACIL [Suspect]
     Active Substance: FLUOROURACIL
     Dosage: 4992 MILLIGRAM, Q2W
     Route: 042
  4. OXALIPLATIN [Suspect]
     Active Substance: OXALIPLATIN
     Indication: Colorectal cancer metastatic
     Dosage: 177 MILLIGRAM, Q2W
     Route: 042
  5. TUCATINIB [Suspect]
     Active Substance: TUCATINIB
     Indication: Colorectal cancer metastatic
     Route: 048
  6. LEUCOVORIN CALCIUM [Suspect]
     Active Substance: LEUCOVORIN CALCIUM
     Indication: Colorectal cancer metastatic
     Dosage: 832 MILLIGRAM, Q2W
     Route: 042
  7. APIXABAN [Suspect]
     Active Substance: APIXABAN
     Indication: Deep vein thrombosis
     Dosage: 5 MILLIGRAM, QD
     Route: 048

REACTIONS (3)
  - Large intestine polyp [Recovered/Resolved]
  - Lower gastrointestinal haemorrhage [Recovered/Resolved]
  - Duodenal ulcer [Recovered/Resolved]
